FAERS Safety Report 11397770 (Version 2)
Quarter: 2015Q3

REPORT INFORMATION
  Report Type: Report from Study
  Country: GB (occurrence: GB)
  Receive Date: 20150819
  Receipt Date: 20150824
  Transmission Date: 20151125
  Serious: Yes (Death)
  Sender: FDA-Public Use
  Company Number: GB-ROCHE-1536587

PATIENT
  Age: 77 Year
  Sex: Female

DRUGS (8)
  1. CO-DYDRAMOL [Concomitant]
     Active Substance: ACETAMINOPHEN\DIHYDROCODEINE
     Dosage: 20/2000MG/DAY
     Route: 065
     Dates: start: 20030228
  2. PERTUZUMAB [Suspect]
     Active Substance: PERTUZUMAB
     Indication: HER-2 POSITIVE BREAST CANCER
     Dosage: LOADING DOSE, CYCLE 1 DAY 1 ONLY
     Route: 042
     Dates: start: 20131210, end: 20131210
  3. TRASTUZUMAB [Suspect]
     Active Substance: TRASTUZUMAB
     Dosage: MAINTAINANCE DOSE, LAST DOSE PRIOR TO SAE 29/JUL/2014.
     Route: 042
     Dates: start: 20140101
  4. PERTUZUMAB [Suspect]
     Active Substance: PERTUZUMAB
     Dosage: MAINTENANCE DOSE, LAST DOSE PRIOR TO SAE 29/JUL/2014
     Route: 042
     Dates: start: 20131231
  5. TRASTUZUMAB [Suspect]
     Active Substance: TRASTUZUMAB
     Indication: HER-2 POSITIVE BREAST CANCER
     Dosage: LOADING DOSE, DAY 1 CYCLE 1 ONLY
     Route: 042
     Dates: start: 20131211, end: 20131211
  6. LEVOTHYROXINE. [Concomitant]
     Active Substance: LEVOTHYROXINE
     Route: 065
     Dates: start: 20030228
  7. PACLITAXEL. [Suspect]
     Active Substance: PACLITAXEL
     Indication: HER-2 POSITIVE BREAST CANCER
     Dosage: LAST DOSE PRIOR TO SAE 22/APR/2014
     Route: 065
     Dates: start: 20131211
  8. LOPERAMIDE [Concomitant]
     Active Substance: LOPERAMIDE
     Route: 065
     Dates: start: 20140128, end: 20140128

REACTIONS (1)
  - Cardiac failure [Fatal]

NARRATIVE: CASE EVENT DATE: 20150116
